FAERS Safety Report 21634648 (Version 1)
Quarter: 2022Q4

REPORT INFORMATION
  Report Type: Report from Study
  Country: FR (occurrence: FR)
  Receive Date: 20221123
  Receipt Date: 20221123
  Transmission Date: 20230113
  Serious: Yes (Hospitalization)
  Sender: FDA-Public Use
  Company Number: FR-CARA THERAPEUTICS, INC.-2022-00074-FR

PATIENT
  Sex: Male

DRUGS (14)
  1. DIFELIKEFALIN [Suspect]
     Active Substance: DIFELIKEFALIN
     Indication: Pruritus
     Dosage: UNK
     Route: 042
     Dates: start: 2022
  2. DIFELIKEFALIN [Suspect]
     Active Substance: DIFELIKEFALIN
     Indication: Uraemic pruritus
  3. INSULIN GLARGINE [Concomitant]
     Active Substance: INSULIN GLARGINE
     Dosage: 14 UNK
  4. HUMALOG [Concomitant]
     Active Substance: INSULIN LISPRO
  5. ALFACALCIDOL [Concomitant]
     Active Substance: ALFACALCIDOL
     Dosage: 1 UNK
  6. BISOPROLOL [Concomitant]
     Active Substance: BISOPROLOL
     Dosage: 2.5 UNK
  7. KARDEGIC [Concomitant]
     Active Substance: ASPIRIN DL-LYSINE
     Dosage: 75 UNK
  8. LIDOCAINE [Concomitant]
     Active Substance: LIDOCAINE
     Dosage: 1 APPLICATION ON DIALYSIS DAYS
  9. PRILOCAINE [Concomitant]
     Active Substance: PRILOCAINE
     Dosage: 1 APPLICATION ON DIALYSIS DAYS
  10. LIPTRUZET [Concomitant]
     Active Substance: ATORVASTATIN CALCIUM\EZETIMIBE
     Dosage: 10/40 MG
  11. MAGNE-B6 [MAGNESIUM LACTATE;MAGNESIUM PIDOLATE;PYRIDOXINE HYDROCHLORID [Concomitant]
     Dosage: 45/8 MG
  12. EPREX [Concomitant]
     Active Substance: ERYTHROPOIETIN
     Dosage: 10000 UNK
  13. CHOLECALCIFEROL [Concomitant]
     Active Substance: CHOLECALCIFEROL
     Dosage: 5000 UNK
  14. IRON SUCROSE [Concomitant]
     Active Substance: IRON SUCROSE
     Indication: Anaemia
     Dosage: UNK
     Dates: start: 202207

REACTIONS (6)
  - Disorientation [Recovered/Resolved]
  - Fatigue [Not Recovered/Not Resolved]
  - Drug ineffective [Unknown]
  - Somnolence [Unknown]
  - Muscular weakness [Unknown]
  - Dizziness [Unknown]

NARRATIVE: CASE EVENT DATE: 20220101
